FAERS Safety Report 15991554 (Version 1)
Quarter: 2019Q1

REPORT INFORMATION
  Report Type: Spontaneous
  Country: CN (occurrence: CN)
  Receive Date: 20190221
  Receipt Date: 20190221
  Transmission Date: 20190418
  Serious: Yes (Other)
  Sender: FDA-Public Use
  Company Number: CN-PFIZER INC-2019073658

PATIENT
  Age: 87 Year
  Sex: Male
  Weight: 56 kg

DRUGS (1)
  1. MEDROL [Suspect]
     Active Substance: METHYLPREDNISOLONE
     Indication: ANTIINFLAMMATORY THERAPY
     Dosage: 20 MG, 1X/DAY
     Route: 048
     Dates: start: 20181224, end: 20181225

REACTIONS (4)
  - Delirium [Recovering/Resolving]
  - Dysphoria [Recovering/Resolving]
  - Dyspnoea [Recovering/Resolving]
  - Psychomotor hyperactivity [Recovering/Resolving]

NARRATIVE: CASE EVENT DATE: 20181225
